FAERS Safety Report 13610363 (Version 1)
Quarter: 2017Q2

REPORT INFORMATION
  Report Type: Spontaneous
  Country: US (occurrence: US)
  Receive Date: 20170602
  Receipt Date: 20170602
  Transmission Date: 20170830
  Serious: Yes (Disabling)
  Sender: FDA-Public Use
  Company Number: None

PATIENT
  Age: 67 Year
  Sex: Female
  Weight: 60.3 kg

DRUGS (6)
  1. ARTHRITIS CREAMS [Concomitant]
  2. TYLENOL [Concomitant]
     Active Substance: ACETAMINOPHEN
  3. PROAIR HFR [Concomitant]
  4. ALEVE [Concomitant]
     Active Substance: NAPROXEN SODIUM
  5. SYMBICORT [Concomitant]
     Active Substance: BUDESONIDE\FORMOTEROL FUMARATE DIHYDRATE
  6. ANORO ELLIPTA [Suspect]
     Active Substance: UMECLIDINIUM BROMIDE\VILANTEROL TRIFENATATE
     Indication: CHRONIC OBSTRUCTIVE PULMONARY DISEASE
     Dosage: OTHER STRENGTH:MCG;QUANTITY:30 INHALATION(S);?
     Route: 055
     Dates: start: 20161215, end: 20170522

REACTIONS (2)
  - Bone pain [None]
  - Myalgia [None]

NARRATIVE: CASE EVENT DATE: 20170305
